FAERS Safety Report 8531878-8 (Version None)
Quarter: 2012Q3

REPORT INFORMATION
  Report Type: 
  Country: None (occurrence: None)
  Receive Date: 20120723
  Receipt Date: 20120713
  Transmission Date: 20120928
  Serious: Yes (Hospitalization)
  Sender: FDA-Public Use
  Company Number: FR-ABBOTT-12P-056-0956006-00

PATIENT
  Age: 50 Year
  Sex: Female

DRUGS (1)
  1. HUMIRA [Suspect]
     Indication: CROHN'S DISEASE
     Dates: start: 20110804

REACTIONS (7)
  - HEADACHE [None]
  - THROMBOTIC STROKE [None]
  - NAUSEA [None]
  - DIZZINESS [None]
  - VERTEBRAL ARTERY THROMBOSIS [None]
  - AORTIC DISSECTION [None]
  - VOMITING [None]
